FAERS Safety Report 5170649-X (Version None)
Quarter: 2006Q4

REPORT INFORMATION
  Report Type: 
  Country: None (occurrence: None)
  Receive Date: 20061201
  Receipt Date: 20061116
  Transmission Date: 20070319
  Serious: Yes (Death)
  Sender: FDA-Public Use
  Company Number: 2006JP002682

PATIENT
  Age: 74 Year
  Sex: Female

DRUGS (14)
  1. TACROLIMUS [Suspect]
     Indication: RHEUMATOID ARTHRITIS
     Dosage: ORAL
     Route: 048
     Dates: start: 20060118, end: 20060131
  2. TACROLIMUS [Suspect]
     Indication: RHEUMATOID ARTHRITIS
     Dosage: ORAL
     Route: 048
     Dates: start: 20060201, end: 20060729
  3. METALCAPTASE [Concomitant]
  4. PREDNISOLONE [Concomitant]
  5. LOXONIN (LOXOPROFEN SODIUM) [Concomitant]
  6. CLINORIL [Concomitant]
  7. MUCOSTA (REBAMIPIDE) [Concomitant]
  8. AMARYL [Concomitant]
  9. PREDNISOLONE [Concomitant]
  10. RABEPRAZOLE SODIUM [Concomitant]
  11. CYTOTEC [Concomitant]
  12. RISEDRONATE SODIUM [Concomitant]
  13. LANSOPRAZOLE [Concomitant]
  14. GASMOTIN (MOSAPRIDE CITRATE) [Concomitant]

REACTIONS (4)
  - CONDITION AGGRAVATED [None]
  - INTERSTITIAL LUNG DISEASE [None]
  - RENAL TUBULAR DISORDER [None]
  - THERAPY NON-RESPONDER [None]
